FAERS Safety Report 21454695 (Version 8)
Quarter: 2023Q1

REPORT INFORMATION
  Report Type: Spontaneous
  Country: US (occurrence: US)
  Receive Date: 20221013
  Receipt Date: 20230124
  Transmission Date: 20230418
  Serious: Yes (Other)
  Sender: FDA-Public Use
  Company Number: US-SA-SAC20221011001081

PATIENT
  Age: 47 Year
  Sex: Male
  Weight: 55.782 kg

DRUGS (28)
  1. DUPIXENT [Suspect]
     Active Substance: DUPILUMAB
     Indication: Dermatitis atopic
     Dosage: 300 MG, QOW
     Route: 058
     Dates: start: 202009
  2. DUPIXENT [Suspect]
     Active Substance: DUPILUMAB
     Indication: Illness
  3. VIMPAT [Concomitant]
     Active Substance: LACOSAMIDE
     Dosage: UNK
  4. ONDANSETRON HCL [Concomitant]
     Active Substance: ONDANSETRON HYDROCHLORIDE
     Dosage: UNK
  5. VENTOLIN HFA [Concomitant]
     Active Substance: ALBUTEROL SULFATE
     Dosage: UNK
  6. ACETAMINOPHEN\HYDROCODONE [Concomitant]
     Active Substance: ACETAMINOPHEN\HYDROCODONE
     Dosage: UNK
  7. AUGMENTIN [Concomitant]
     Active Substance: AMOXICILLIN\CLAVULANATE POTASSIUM
     Dosage: 500-125 MG
  8. CIPROFLOXACIN HYDROCHLORIDE [Concomitant]
     Active Substance: CIPROFLOXACIN HYDROCHLORIDE
     Dosage: UNK
  9. ALBUTEROL SULFATE [Concomitant]
     Active Substance: ALBUTEROL SULFATE
     Dosage: UNK
  10. CLOBETASOL [Concomitant]
     Active Substance: CLOBETASOL
     Dosage: UNK
  11. PREDNISONE [Concomitant]
     Active Substance: PREDNISONE
     Dosage: UNK
  12. SINGULAIR [Concomitant]
     Active Substance: MONTELUKAST SODIUM
     Dosage: UNK
  13. PLAQUENIL [Concomitant]
     Active Substance: HYDROXYCHLOROQUINE SULFATE
     Dosage: UNK
  14. PLAQUENIL [Concomitant]
     Active Substance: HYDROXYCHLOROQUINE SULFATE
  15. AMITIZA [Concomitant]
     Active Substance: LUBIPROSTONE
     Dosage: 24MCG
  16. AMITIZA [Concomitant]
     Active Substance: LUBIPROSTONE
  17. METOPROLOL SUCCINATE [Concomitant]
     Active Substance: METOPROLOL SUCCINATE
     Dosage: UNK
  18. METOPROLOL SUCCINATE [Concomitant]
     Active Substance: METOPROLOL SUCCINATE
  19. GABITRIL [Concomitant]
     Active Substance: TIAGABINE HYDROCHLORIDE
     Dosage: UNK
  20. GABITRIL [Concomitant]
     Active Substance: TIAGABINE HYDROCHLORIDE
  21. COPPERTONE [OXYBENZONE;PADIMATE] [Concomitant]
     Dosage: UNK
  22. CUREL ADVANCED CERAMIDE THERAPY [Concomitant]
     Active Substance: PETROLATUM
  23. ONFI [Concomitant]
     Active Substance: CLOBAZAM
     Dosage: UNK
  24. OMEPRAZOLE [Concomitant]
     Active Substance: OMEPRAZOLE
     Indication: Gastrointestinal disorder
     Dosage: UNK
  25. ACETAMINOPHEN\HYDROCODONE [Concomitant]
     Active Substance: ACETAMINOPHEN\HYDROCODONE
     Dosage: UNK
  26. ARTIFICIAL TEARS [HYPROMELLOSE] [Concomitant]
     Dosage: UNK
  27. ARTIFICIAL TEARS [CARMELLOSE SODIUM] [Concomitant]
     Dosage: UNK, 0.1%-0.3%
  28. AUGMENTIN [Concomitant]
     Active Substance: AMOXICILLIN\CLAVULANATE POTASSIUM
     Dosage: UNK

REACTIONS (36)
  - Lupus-like syndrome [Not Recovered/Not Resolved]
  - Headache [Not Recovered/Not Resolved]
  - Ear discomfort [Unknown]
  - Bone pain [Unknown]
  - Palpitations [Not Recovered/Not Resolved]
  - Illness [Not Recovered/Not Resolved]
  - Hypoaesthesia [Not Recovered/Not Resolved]
  - Skin warm [Not Recovered/Not Resolved]
  - Abdominal discomfort [Not Recovered/Not Resolved]
  - Tremor [Not Recovered/Not Resolved]
  - Dysgraphia [Not Recovered/Not Resolved]
  - Musculoskeletal chest pain [Unknown]
  - Generalised oedema [Unknown]
  - Musculoskeletal stiffness [Unknown]
  - Thirst [Unknown]
  - Pain [Unknown]
  - Fluid retention [Unknown]
  - Gastrointestinal disorder [Unknown]
  - Lacrimation increased [Not Recovered/Not Resolved]
  - Fatigue [Not Recovered/Not Resolved]
  - Dry skin [Not Recovered/Not Resolved]
  - Temperature regulation disorder [Unknown]
  - Sleep disorder [Unknown]
  - Musculoskeletal discomfort [Not Recovered/Not Resolved]
  - Back disorder [Not Recovered/Not Resolved]
  - Sensory loss [Not Recovered/Not Resolved]
  - Peripheral coldness [Not Recovered/Not Resolved]
  - Pain in extremity [Not Recovered/Not Resolved]
  - Facial pain [Not Recovered/Not Resolved]
  - Stomatitis [Not Recovered/Not Resolved]
  - Oral pain [Not Recovered/Not Resolved]
  - Tongue disorder [Not Recovered/Not Resolved]
  - Dry eye [Not Recovered/Not Resolved]
  - Arthralgia [Unknown]
  - Dermatitis atopic [Not Recovered/Not Resolved]
  - Product use in unapproved indication [Unknown]

NARRATIVE: CASE EVENT DATE: 20200901
